FAERS Safety Report 18832532 (Version 2)
Quarter: 2021Q1

REPORT INFORMATION
  Report Type: Report from Study
  Country: US (occurrence: US)
  Receive Date: 20210203
  Receipt Date: 20210223
  Transmission Date: 20210419
  Serious: Yes (Other)
  Sender: FDA-Public Use
  Company Number: US-TAKEDA-US202008916

PATIENT
  Sex: Female

DRUGS (4)
  1. BENADRYL [Concomitant]
     Active Substance: DIPHENHYDRAMINE HYDROCHLORIDE
     Indication: PRODUCT USED FOR UNKNOWN INDICATION
     Dosage: UNK
     Route: 065
  2. HUMAN IMMUNOGLOBULIN; HYALURONIDASE [Suspect]
     Active Substance: HUMAN IMMUNOGLOBULIN G\HYALURONIDASE RECOMBINANT HUMAN
     Indication: IMMUNODEFICIENCY COMMON VARIABLE
  3. GAMMAGARD [Concomitant]
     Active Substance: HUMAN IMMUNOGLOBULIN G
     Indication: PRODUCT USED FOR UNKNOWN INDICATION
     Dosage: UNK
     Route: 065
  4. HUMAN IMMUNOGLOBULIN; HYALURONIDASE [Suspect]
     Active Substance: HUMAN IMMUNOGLOBULIN G\HYALURONIDASE RECOMBINANT HUMAN
     Indication: PRIMARY IMMUNODEFICIENCY SYNDROME
     Dosage: UNK UNK, Q5WEEKS
     Route: 065

REACTIONS (24)
  - Poor quality sleep [Unknown]
  - Dehydration [Unknown]
  - Abdominal pain upper [Unknown]
  - Infusion site bruising [Unknown]
  - Nausea [Recovering/Resolving]
  - Discomfort [Unknown]
  - Paraesthesia [Unknown]
  - Agitation [Unknown]
  - Eye disorder [Unknown]
  - Drug hypersensitivity [Unknown]
  - Pain [Recovering/Resolving]
  - Immunoglobulins abnormal [Unknown]
  - Dizziness [Unknown]
  - Blood cholesterol increased [Unknown]
  - Transient ischaemic attack [Unknown]
  - Abdominal discomfort [Unknown]
  - Headache [Unknown]
  - Vomiting [Unknown]
  - Immunoglobulins decreased [Unknown]
  - Infusion site urticaria [Unknown]
  - Systemic lupus erythematosus [Unknown]
  - Chest discomfort [Recovering/Resolving]
  - Anxiety [Unknown]
  - Illness [Unknown]
